FAERS Safety Report 25389626 (Version 1)
Quarter: 2025Q2

REPORT INFORMATION
  Report Type: Spontaneous
  Country: CN (occurrence: CN)
  Receive Date: 20250603
  Receipt Date: 20250603
  Transmission Date: 20250716
  Serious: Yes (Life-Threatening, Other)
  Sender: PFIZER
  Company Number: CN-PFIZER INC-PV202500065214

PATIENT
  Age: 84 Year
  Sex: Female

DRUGS (5)
  1. TIGECYCLINE [Suspect]
     Active Substance: TIGECYCLINE
     Indication: Infection
     Dosage: 100 MG, 2X/DAY (Q12H)
     Dates: start: 20240627
  2. TIGECYCLINE [Suspect]
     Active Substance: TIGECYCLINE
     Dosage: 50 MG, 2X/DAY (Q12H)
     Dates: start: 202406, end: 20240705
  3. IMIPENEM AND CILASTATIN [Concomitant]
     Active Substance: CILASTATIN SODIUM\IMIPENEM
     Indication: Infection
     Dosage: 2 G, 3X/DAY (Q8H)
     Dates: start: 202406, end: 20240703
  4. IMIPENEM AND CILASTATIN [Concomitant]
     Active Substance: CILASTATIN SODIUM\IMIPENEM
     Indication: Septic shock
  5. CEFMETAZOLE [Concomitant]
     Active Substance: CEFMETAZOLE
     Indication: Infection
     Dosage: 2 G, BID
     Dates: start: 20240703

REACTIONS (7)
  - Blood bilirubin increased [Recovering/Resolving]
  - Liver injury [Recovering/Resolving]
  - Coagulopathy [Recovering/Resolving]
  - Prothrombin time prolonged [Recovering/Resolving]
  - Activated partial thromboplastin time prolonged [Recovering/Resolving]
  - International normalised ratio increased [Recovering/Resolving]
  - Blood fibrinogen decreased [Recovering/Resolving]

NARRATIVE: CASE EVENT DATE: 20240630
